FAERS Safety Report 5091274-5 (Version None)
Quarter: 2006Q3

REPORT INFORMATION
  Report Type: 
  Country: None (occurrence: None)
  Receive Date: 20060829
  Receipt Date: 20060821
  Transmission Date: 20061208
  Serious: Yes (Hospitalization)
  Sender: FDA-Public Use
  Company Number: FR-AVENTIS-200612898FR

PATIENT
  Age: 50 Year
  Sex: Female
  Weight: 60 kg

DRUGS (4)
  1. LASILIX [Suspect]
     Indication: OEDEMA
     Route: 048
     Dates: start: 20060710, end: 20060730
  2. ALDACTONE [Suspect]
     Indication: MUSCLE DISORDER
     Route: 048
     Dates: start: 20060710, end: 20060730
  3. XANAX [Concomitant]
     Route: 048
  4. DEROXAT [Concomitant]
     Route: 048
     Dates: end: 20060730

REACTIONS (3)
  - DEHYDRATION [None]
  - HEPATIC ENCEPHALOPATHY [None]
  - RENAL FAILURE ACUTE [None]
